FAERS Safety Report 13901902 (Version 1)
Quarter: 2017Q3

REPORT INFORMATION
  Report Type: Spontaneous
  Country: US (occurrence: US)
  Receive Date: 20170824
  Receipt Date: 20170824
  Transmission Date: 20171127
  Serious: No
  Sender: FDA-Public Use
  Company Number: US-ROCHE-1129718

PATIENT
  Sex: Male

DRUGS (9)
  1. HERCEPTIN [Suspect]
     Active Substance: TRASTUZUMAB
     Dosage: WITH NORMAL SALINE SOLUTION 250
     Route: 065
     Dates: start: 19990212
  2. HERCEPTIN [Suspect]
     Active Substance: TRASTUZUMAB
     Dosage: WITH NORMAL SALINE SOLUTION 250
     Route: 065
     Dates: start: 19990304
  3. BENADRYL [Concomitant]
     Active Substance: DIPHENHYDRAMINE HYDROCHLORIDE
     Dosage: WITH NORMAL SALINE SOLUTON
     Route: 065
     Dates: start: 19990304
  4. HERCEPTIN [Suspect]
     Active Substance: TRASTUZUMAB
     Indication: PROSTATE CANCER
     Dosage: 17 DECEMBER (YEAR UNKNOWN) TREATMENT START DATE WITH LOADING DOSE
     Route: 065
  5. HERCEPTIN [Suspect]
     Active Substance: TRASTUZUMAB
     Dosage: MAINTAINANCE DOSE
     Route: 065
  6. BENADRYL [Concomitant]
     Active Substance: DIPHENHYDRAMINE HYDROCHLORIDE
     Dosage: WITH NORMAL SALINE SOLUTON
     Route: 065
     Dates: start: 19990226
  7. TAXOL [Concomitant]
     Active Substance: PACLITAXEL
  8. HERCEPTIN [Suspect]
     Active Substance: TRASTUZUMAB
     Dosage: WITH NORMAL SALINE SOLUTION 250
     Route: 065
     Dates: start: 19990226
  9. BENADRYL [Concomitant]
     Active Substance: DIPHENHYDRAMINE HYDROCHLORIDE
     Dosage: WITH NORMAL SALINE SOLUTON
     Route: 065
     Dates: start: 19990226

REACTIONS (1)
  - Arthralgia [Unknown]
